FAERS Safety Report 21701490 (Version 2)
Quarter: 2022Q4

REPORT INFORMATION
  Report Type: Spontaneous
  Country: US (occurrence: US)
  Receive Date: 20221208
  Receipt Date: 20221219
  Transmission Date: 20230112
  Serious: Yes (Other)
  Sender: FDA-Public Use
  Company Number: US-TEVA-2022-US-2832637

PATIENT

DRUGS (1)
  1. ACYCLOVIR [Suspect]
     Active Substance: ACYCLOVIR
     Indication: Disseminated neonatal herpes simplex
     Dosage: HIGH DOSE
     Route: 042

REACTIONS (2)
  - Nephropathy toxic [Not Recovered/Not Resolved]
  - Renal failure [Not Recovered/Not Resolved]
